FAERS Safety Report 24440973 (Version 2)
Quarter: 2024Q4

REPORT INFORMATION
  Report Type: Spontaneous
  Country: US (occurrence: US)
  Receive Date: 20241016
  Receipt Date: 20241031
  Transmission Date: 20250115
  Serious: No
  Sender: BIOGEN
  Company Number: US-BIOGEN-2024BI01286764

PATIENT
  Age: 34 Year
  Sex: Female

DRUGS (1)
  1. ZURZUVAE [Suspect]
     Active Substance: ZURANOLONE
     Indication: Perinatal depression
     Route: 050
     Dates: start: 202409, end: 2024

REACTIONS (8)
  - Muscular weakness [Not Recovered/Not Resolved]
  - Blepharospasm [Not Recovered/Not Resolved]
  - Fear [Not Recovered/Not Resolved]
  - Extrapyramidal disorder [Recovered/Resolved]
  - Feeling jittery [Recovered/Resolved]
  - Motor dysfunction [Recovered/Resolved]
  - Anxiety [Recovered/Resolved]
  - Muscle twitching [Not Recovered/Not Resolved]

NARRATIVE: CASE EVENT DATE: 20240928
